FAERS Safety Report 6181153-4 (Version None)
Quarter: 2009Q2

REPORT INFORMATION
  Report Type: 
  Country: None (occurrence: None)
  Receive Date: 20090504
  Receipt Date: 20090504
  Transmission Date: 20091009
  Serious: Yes (Hospitalization)
  Sender: FDA-Public Use
  Company Number: None

PATIENT
  Sex: Female
  Weight: 64.4108 kg

DRUGS (1)
  1. DOXYCYCLINE HCL [Suspect]
     Indication: FOLLICULITIS
     Dosage: 1 CAPSULE ONCE A DAY PO
     Route: 048
     Dates: start: 20090306, end: 20090307

REACTIONS (2)
  - COLON OPERATION [None]
  - PRODUCT QUALITY ISSUE [None]
